FAERS Safety Report 13013558 (Version 1)
Quarter: 2016Q4

REPORT INFORMATION
  Report Type: Spontaneous
  Country: TW (occurrence: TW)
  Receive Date: 20161209
  Receipt Date: 20161209
  Transmission Date: 20170207
  Serious: Yes (Death)
  Sender: FDA-Public Use
  Company Number: TW-KERYX BIOPHARMACEUTICALS, INC.-2016TW002398

PATIENT
  Age: 47 Year
  Sex: Male

DRUGS (3)
  1. ALUMINIUM [Concomitant]
     Active Substance: ALUMINUM
     Indication: BLOOD PHOSPHORUS INCREASED
     Dosage: UNK
  2. NEPHOXIL [Suspect]
     Active Substance: FERRIC CITRATE ANHYDROUS
     Indication: HYPERPHOSPHATAEMIA
     Dosage: 3,000 MG PER DAY (6X500 MG)
     Route: 048
     Dates: start: 20160304, end: 20160630
  3. CALCIUM [Concomitant]
     Active Substance: CALCIUM
     Indication: BLOOD PHOSPHORUS INCREASED
     Dosage: UNK

REACTIONS (1)
  - Death [Fatal]

NARRATIVE: CASE EVENT DATE: 2016
